FAERS Safety Report 16750845 (Version 2)
Quarter: 2019Q4

REPORT INFORMATION
  Report Type: Other
  Country: US (occurrence: US)
  Receive Date: 20190828
  Receipt Date: 20191115
  Transmission Date: 20200122
  Serious: Yes (Hospitalization, Other)
  Sender: FDA-Public Use
  Company Number: US-AMAG PHARMACEUTICALS, INC.-AMAG201904459

PATIENT
  Age: 29 Year
  Sex: Female
  Weight: 118.04 kg

DRUGS (4)
  1. KEFLEX [Concomitant]
     Active Substance: CEPHALEXIN
     Indication: URINARY TRACT INFECTION
  2. LANTUS [Concomitant]
     Active Substance: INSULIN GLARGINE
     Indication: DIABETES MELLITUS
  3. METFORMIN [Concomitant]
     Active Substance: METFORMIN HYDROCHLORIDE
     Indication: DIABETES MELLITUS
  4. MAKENA [Suspect]
     Active Substance: HYDROXYPROGESTERONE CAPROATE
     Indication: PREMATURE DELIVERY
     Route: 058
     Dates: start: 20190523, end: 20190815

REACTIONS (6)
  - Chlamydia test positive [Unknown]
  - Escherichia test positive [Unknown]
  - Streptococcus test positive [Unknown]
  - Product dose omission [Unknown]
  - Premature delivery [Recovered/Resolved]
  - Transverse presentation [Recovered/Resolved]

NARRATIVE: CASE EVENT DATE: 2019
